FAERS Safety Report 4961798-7 (Version None)
Quarter: 2006Q1

REPORT INFORMATION
  Report Type: 
  Country: None (occurrence: None)
  Receive Date: 20060329
  Receipt Date: 20060314
  Transmission Date: 20060701
  Serious: Yes (Hospitalization)
  Sender: FDA-Public Use
  Company Number: 2006S1002218

PATIENT
  Age: 42 Year
  Sex: Female
  Weight: 141.5223 kg

DRUGS (4)
  1. FENTANYL TRANSDERMAL SYSTEM [Suspect]
     Indication: FIBROMYALGIA
     Dosage: 50 UG/HR;Q3D;TRANS
     Route: 062
     Dates: start: 20060101, end: 20060308
  2. ESCITALOPRAM OXALATE [Concomitant]
  3. PARACETAMOL/DEXTROPROPOXYPHENE NAPSILATE [Concomitant]
  4. NAPSILATE [Concomitant]

REACTIONS (9)
  - ARTERIOSCLEROSIS [None]
  - EXTRASYSTOLES [None]
  - HEART RATE DECREASED [None]
  - HEART RATE INCREASED [None]
  - HOT FLUSH [None]
  - OEDEMA [None]
  - SYNCOPE [None]
  - URINARY RETENTION [None]
  - WEIGHT DECREASED [None]
